FAERS Safety Report 18570797 (Version 2)
Quarter: 2020Q4

REPORT INFORMATION
  Report Type: Spontaneous
  Country: EG (occurrence: EG)
  Receive Date: 20201202
  Receipt Date: 20201211
  Transmission Date: 20210114
  Serious: Yes (Life-Threatening)
  Sender: FDA-Public Use
  Company Number: EG-NOVOPROD-770615

PATIENT
  Sex: Female
  Weight: 3.25 kg

DRUGS (2)
  1. NOVORAPID [Suspect]
     Active Substance: INSULIN ASPART
     Indication: TYPE 2 DIABETES MELLITUS
     Dosage: EXPOSURE THROUGH MOTHER USAGE WHILE PREGNANT
     Route: 064
     Dates: end: 20201019
  2. LEVEMIR [Suspect]
     Active Substance: INSULIN DETEMIR
     Indication: TYPE 2 DIABETES MELLITUS
     Dosage: EXPOSURE THROUGH MOTHER USAGE WHILE PREGNANT
     Route: 064
     Dates: end: 20201019

REACTIONS (2)
  - Jaundice neonatal [Recovered/Resolved]
  - Foetal exposure during pregnancy [Recovered/Resolved]

NARRATIVE: CASE EVENT DATE: 202010
